FAERS Safety Report 21706709 (Version 1)
Quarter: 2022Q4

REPORT INFORMATION
  Report Type: Spontaneous
  Country: US (occurrence: US)
  Receive Date: 20221209
  Receipt Date: 20221209
  Transmission Date: 20230112
  Serious: No
  Sender: FDA-Public Use
  Company Number: US-PFIZER INC-202201353612

PATIENT
  Age: 59 Year
  Sex: Female

DRUGS (1)
  1. PAXLOVID [Suspect]
     Active Substance: NIRMATRELVIR\RITONAVIR
     Indication: COVID-19 treatment
     Dosage: UNK
     Dates: start: 20221123, end: 20221128

REACTIONS (11)
  - Chest discomfort [Recovering/Resolving]
  - Headache [Recovering/Resolving]
  - Cough [Recovering/Resolving]
  - Fatigue [Recovering/Resolving]
  - Rhinorrhoea [Recovering/Resolving]
  - Diarrhoea [Recovering/Resolving]
  - Oropharyngeal pain [Recovering/Resolving]
  - Facial pain [Recovering/Resolving]
  - Toothache [Recovering/Resolving]
  - Head discomfort [Recovering/Resolving]
  - Sinusitis [Recovering/Resolving]

NARRATIVE: CASE EVENT DATE: 20221204
